FAERS Safety Report 4689138-1 (Version None)
Quarter: 2005Q2

REPORT INFORMATION
  Report Type: 
  Country: None (occurrence: None)
  Receive Date: 20050613
  Receipt Date: 20050411
  Transmission Date: 20051028
  Serious: Yes (Death, Hospitalization, Other)
  Sender: FDA-Public Use
  Company Number: PHEH2005US04165

PATIENT
  Age: 91 Year
  Sex: Male

DRUGS (12)
  1. ZOMETA [Suspect]
     Indication: METASTASES TO BONE
     Dosage: 4 MG, Q MONTH
     Route: 042
     Dates: start: 20040907, end: 20050310
  2. ZOMETA [Suspect]
  3. LASIX [Suspect]
     Indication: OEDEMA PERIPHERAL
     Dosage: 40 MG, QD
     Route: 048
     Dates: end: 20050402
  4. TOPROL-XL [Concomitant]
     Indication: CARDIOMYOPATHY
     Dosage: 25 MG, QD
     Route: 048
  5. LIPITOR [Concomitant]
     Indication: HYPERCHOLESTEROLAEMIA
     Dosage: UNK MG, QD
     Route: 048
  6. ASPIRIN [Concomitant]
     Dosage: 81 MG, QD
     Route: 048
  7. PLAVIX [Concomitant]
     Dosage: 75 MG, QD
     Route: 048
  8. FLOMAX [Concomitant]
     Indication: PROSTATE CANCER
     Dosage: 0.4 MG, QD
     Route: 048
  9. CASODEX [Concomitant]
     Indication: PROSTATE CANCER
     Dosage: 50 MG, QD
  10. CALTRATE +D [Concomitant]
     Dosage: 600 MG, BID
  11. COLCHICINE [Concomitant]
     Indication: GOUT
     Dosage: 0.6 MG, BID
  12. LUPRON [Concomitant]
     Indication: PROSTATE CANCER
     Dosage: 30 MG, Q 4 MONTHS
     Route: 030

REACTIONS (9)
  - ACUTE PRERENAL FAILURE [None]
  - BLOOD CREATININE INCREASED [None]
  - BLOOD UREA INCREASED [None]
  - BRONCHITIS [None]
  - DEATH [None]
  - DEHYDRATION [None]
  - DYSPNOEA [None]
  - MYOCARDIAL INFARCTION [None]
  - MYOCARDIAL ISCHAEMIA [None]
